FAERS Safety Report 4472383-8 (Version None)
Quarter: 2004Q4

REPORT INFORMATION
  Report Type: 
  Country: None (occurrence: None)
  Receive Date: 20041007
  Receipt Date: 20040929
  Transmission Date: 20050328
  Serious: Yes (Hospitalization, Other)
  Sender: FDA-Public Use
  Company Number: 2004236162US

PATIENT
  Age: 28 Year
  Sex: Female
  Weight: 88.4 kg

DRUGS (1)
  1. DEPO-PROVERA [Suspect]
     Indication: CONTRACEPTION
     Dosage: 150 MG, 1ST INJECTION, INTRAMUSCULAR
     Route: 030
     Dates: start: 20040101, end: 20040101

REACTIONS (4)
  - ACNE [None]
  - DRUG INEFFECTIVE [None]
  - HYPERTENSION [None]
  - WEIGHT INCREASED [None]
